FAERS Safety Report 9435147 (Version 1)
Quarter: 2013Q3

REPORT INFORMATION
  Report Type: Spontaneous
  Country: BE (occurrence: BE)
  Receive Date: 20130801
  Receipt Date: 20130801
  Transmission Date: 20140515
  Serious: Yes (Hospitalization, Other)
  Sender: FDA-Public Use
  Company Number: BE-JNJFOC-20130716562

PATIENT
  Age: 82 Year
  Sex: Male
  Weight: 73 kg

DRUGS (11)
  1. XARELTO [Suspect]
     Indication: EMBOLISM
     Route: 048
  2. XARELTO [Suspect]
     Indication: ATRIAL FIBRILLATION
     Route: 048
  3. XARELTO [Suspect]
     Indication: CEREBROVASCULAR ACCIDENT PROPHYLAXIS
     Route: 048
  4. ASAFLOW [Suspect]
     Indication: CARDIOVASCULAR EVENT PROPHYLAXIS
     Route: 048
  5. FUROSEMIDE [Concomitant]
     Indication: HYPERTENSION
     Route: 048
  6. EMCONCOR [Concomitant]
     Indication: CARDIOVASCULAR EVENT PROPHYLAXIS
     Route: 048
  7. PERINDOPRIL [Concomitant]
     Indication: CARDIOVASCULAR EVENT PROPHYLAXIS
     Route: 048
  8. PERINDOPRIL [Concomitant]
     Indication: HYPERTENSION
     Route: 048
  9. INDAPAMIDE [Concomitant]
     Indication: HYPERTENSION
     Route: 048
  10. ZOCOR [Concomitant]
     Indication: CARDIOVASCULAR EVENT PROPHYLAXIS
     Route: 048
  11. LORMETAZEPAM [Concomitant]
     Indication: SLEEP DISORDER
     Route: 048

REACTIONS (4)
  - Melaena [Recovered/Resolved]
  - Duodenal ulcer [Unknown]
  - Oesophagitis [Unknown]
  - Hiatus hernia [Unknown]
